FAERS Safety Report 20141635 (Version 2)
Quarter: 2021Q4

REPORT INFORMATION
  Report Type: Spontaneous
  Country: FR (occurrence: None)
  Receive Date: 20211202
  Receipt Date: 20211210
  Transmission Date: 20220303
  Serious: Yes (Death, Other)
  Sender: FDA-Public Use
  Company Number: FR-Eisai Medical Research-EC-2021-104131

PATIENT
  Age: 60 Year
  Sex: Female

DRUGS (1)
  1. HALAVEN [Suspect]
     Active Substance: ERIBULIN MESYLATE
     Indication: Breast cancer metastatic
     Dosage: DOSE AND FREQUENCY NOT PROVIDED
     Route: 041
     Dates: start: 202111

REACTIONS (4)
  - Encephalopathy [Unknown]
  - Malignant neoplasm progression [Fatal]
  - Sepsis [Fatal]
  - Leukopenia [Unknown]

NARRATIVE: CASE EVENT DATE: 20211101
